FAERS Safety Report 9675450 (Version 1)
Quarter: 2013Q4

REPORT INFORMATION
  Report Type: Spontaneous
  Country: CH (occurrence: CH)
  Receive Date: 20131107
  Receipt Date: 20131107
  Transmission Date: 20140711
  Serious: Yes (Hospitalization)
  Sender: FDA-Public Use
  Company Number: PHHY2013CH123562

PATIENT
  Age: 77 Year
  Sex: Male
  Weight: 63 kg

DRUGS (12)
  1. METOPROLOL [Suspect]
     Indication: MYOCARDIAL ISCHAEMIA
     Dosage: 50 MG, QD
     Route: 048
     Dates: end: 20130906
  2. DIGOXIN [Interacting]
     Indication: MYOCARDIAL ISCHAEMIA
     Dosage: 0.125 MG, QD
     Route: 048
     Dates: end: 20130906
  3. AMIODARONE [Interacting]
     Indication: MYOCARDIAL ISCHAEMIA
     Dosage: 200 MG, QD
     Route: 048
     Dates: start: 20130706
  4. ALDACTONE [Interacting]
     Indication: MYOCARDIAL ISCHAEMIA
     Dosage: 25 MG, QD
     Route: 048
     Dates: end: 20130906
  5. PERINDOPRIL ARGININE [Interacting]
     Indication: MYOCARDIAL ISCHAEMIA
     Dosage: 2.5 MG, QD
     Route: 048
  6. TOREM [Suspect]
     Indication: MYOCARDIAL ISCHAEMIA
     Dosage: 5 MG, QD
     Route: 048
  7. DORMICUM//MIDAZOLAM [Suspect]
     Indication: SLEEP DISORDER
     Dosage: 7.5 MG, QD
     Route: 048
  8. ASPIRIN CARDIO [Concomitant]
     Indication: MYOCARDIAL ISCHAEMIA
     Dosage: 100 MG, QD
     Route: 048
  9. ATORVASTATIN [Concomitant]
     Indication: MYOCARDIAL ISCHAEMIA
     Dosage: 20 MG, QD
     Route: 048
  10. ESOMEPRAZOLE [Concomitant]
     Indication: PROPHYLACTIC CHEMOTHERAPY
     Dosage: 20 MG, QD
     Route: 048
  11. SPIRIVA [Concomitant]
     Indication: CHRONIC OBSTRUCTIVE PULMONARY DISEASE
     Dosage: 18 UG, QD
     Route: 055
  12. SEREVENT [Concomitant]
     Indication: CHRONIC OBSTRUCTIVE PULMONARY DISEASE
     Dosage: 1 DF, BID
     Route: 055

REACTIONS (8)
  - Renal failure acute [Recovered/Resolved]
  - Dehydration [Recovered/Resolved]
  - Orthostatic hypotension [Recovered/Resolved]
  - Hypotension [Recovered/Resolved]
  - Fall [Recovered/Resolved]
  - Nausea [Recovered/Resolved]
  - Hyperkalaemia [Recovered/Resolved]
  - Accidental overdose [Recovered/Resolved]
